FAERS Safety Report 7460076-4 (Version None)
Quarter: 2011Q2

REPORT INFORMATION
  Report Type: 
  Country: None (occurrence: None)
  Receive Date: 20110505
  Receipt Date: 20110426
  Transmission Date: 20111010
  Serious: Yes (Hospitalization)
  Sender: FDA-Public Use
  Company Number: PHFR2011GB02141

PATIENT
  Sex: Male

DRUGS (1)
  1. CLOZARIL [Suspect]
     Dosage: 225 MG, BID
     Route: 048
     Dates: start: 19900312

REACTIONS (4)
  - NEUTROPHIL COUNT INCREASED [None]
  - MENTAL RETARDATION [None]
  - FULL BLOOD COUNT INCREASED [None]
  - WHITE BLOOD CELL COUNT INCREASED [None]
